FAERS Safety Report 13934689 (Version 1)
Quarter: 2017Q3

REPORT INFORMATION
  Report Type: Spontaneous
  Country: US (occurrence: US)
  Receive Date: 20170905
  Receipt Date: 20170905
  Transmission Date: 20171127
  Serious: No
  Sender: FDA-Public Use
  Company Number: US-ENDO PHARMACEUTICALS INC-2017-002396

PATIENT
  Sex: Male

DRUGS (1)
  1. HYDROCORTISONE TABLETS 10MG [Suspect]
     Active Substance: HYDROCORTISONE
     Indication: PRODUCT USED FOR UNKNOWN INDICATION
     Dosage: (10 MG IN MORNING, 10 MG AT NOON AND 5 MG AT NIGHT) TID
     Route: 065

REACTIONS (3)
  - Asthenia [Unknown]
  - Drug effect decreased [Unknown]
  - Drug ineffective [Unknown]
